FAERS Safety Report 6552611-5 (Version None)
Quarter: 2010Q1

REPORT INFORMATION
  Report Type: 
  Country: None (occurrence: None)
  Receive Date: 20100126
  Receipt Date: 20100114
  Transmission Date: 20100710
  Serious: Yes (Hospitalization, Disabling, Other)
  Sender: FDA-Public Use
  Company Number: CA-ELI_LILLY_AND_COMPANY-CA200911007191

PATIENT
  Age: 59 Year
  Sex: Female

DRUGS (4)
  1. FORTEO [Suspect]
     Indication: OSTEOPOROSIS
     Dosage: 20 UG, DAILY (1/D)
     Dates: start: 20090820, end: 20091122
  2. FORTEO [Suspect]
     Dosage: 20 UG, DAILY (1/D)
     Dates: start: 20091125
  3. FOSAMAX [Concomitant]
     Dates: end: 20080101
  4. FOSAMAX [Concomitant]
     Dates: start: 20080601

REACTIONS (11)
  - AFFECT LABILITY [None]
  - BALANCE DISORDER [None]
  - FALL [None]
  - HALLUCINATION, AUDITORY [None]
  - IMPAIRED SELF-CARE [None]
  - LIMB INJURY [None]
  - MOBILITY DECREASED [None]
  - SWELLING FACE [None]
  - TOOTH ABSCESS [None]
  - TOOTH FRACTURE [None]
  - WEIGHT BEARING DIFFICULTY [None]
